FAERS Safety Report 8209234-1 (Version None)
Quarter: 2012Q1

REPORT INFORMATION
  Report Type: 
  Country: None (occurrence: None)
  Receive Date: 20120314
  Receipt Date: 20120312
  Transmission Date: 20120608
  Serious: Yes (Life-Threatening, Hospitalization)
  Sender: FDA-Public Use
  Company Number: PL-BAYER-2011-022092

PATIENT
  Age: 58 Year
  Sex: Male
  Weight: 75 kg

DRUGS (1)
  1. ULTRAVIST 150 [Suspect]
     Indication: ARTERIOGRAM CORONARY
     Dosage: 50 ML, ONCE
     Route: 013
     Dates: start: 20110308, end: 20110308

REACTIONS (5)
  - EYELID PTOSIS [None]
  - DYSARTHRIA [None]
  - HYPERTENSION [None]
  - ATAXIA [None]
  - DIPLOPIA [None]
